FAERS Safety Report 5009490-7 (Version None)
Quarter: 2006Q2

REPORT INFORMATION
  Report Type: 
  Country: None (occurrence: None)
  Receive Date: 20060522
  Receipt Date: 20060505
  Transmission Date: 20061013
  Serious: Yes (Death)
  Sender: FDA-Public Use
  Company Number: 163-20785-03040022

PATIENT
  Age: 67 Year
  Sex: Male

DRUGS (2)
  1. THALOMID [Suspect]
     Indication: MULTIPLE MYELOMA
     Dosage: 200 MG, QD, ORAL
     Route: 048
     Dates: start: 20021029, end: 20030313
  2. THALOMID [Suspect]

REACTIONS (2)
  - PNEUMONIA [None]
  - SEPSIS [None]
